FAERS Safety Report 6284014-5 (Version None)
Quarter: 2009Q3

REPORT INFORMATION
  Report Type: 
  Country: None (occurrence: None)
  Receive Date: 20090727
  Receipt Date: 20090715
  Transmission Date: 20100115
  Serious: Yes (Hospitalization)
  Sender: FDA-Public Use
  Company Number: US-BIOGENIDEC-2009BI022213

PATIENT
  Age: 57 Year
  Sex: Female

DRUGS (1)
  1. TYSABRI [Suspect]
     Indication: MULTIPLE SCLEROSIS
     Route: 042
     Dates: start: 20071121

REACTIONS (10)
  - BREAST ENLARGEMENT [None]
  - CONTUSION [None]
  - DIARRHOEA [None]
  - EXOSTOSIS [None]
  - FATIGUE [None]
  - HUMERUS FRACTURE [None]
  - MAMMOGRAM ABNORMAL [None]
  - MUSCULOSKELETAL PAIN [None]
  - MYOCARDIAL INFARCTION [None]
  - WEIGHT INCREASED [None]
